FAERS Safety Report 10654769 (Version 4)
Quarter: 2015Q3

REPORT INFORMATION
  Report Type: Spontaneous
  Country: FR (occurrence: FR)
  Receive Date: 20141216
  Receipt Date: 20150729
  Transmission Date: 20151125
  Serious: Yes (Hospitalization, Other)
  Sender: FDA-Public Use
  Company Number: PHHY2014FR159144

PATIENT
  Age: 9 Year
  Sex: Male

DRUGS (11)
  1. EXJADE [Suspect]
     Active Substance: DEFERASIROX
     Indication: HYPERFERRITINAEMIA
  2. CICLOSPORIN [Concomitant]
     Active Substance: CYCLOSPORINE
     Indication: APLASTIC ANAEMIA
     Dosage: 150 MG, BID
     Route: 048
     Dates: start: 201305
  3. FORTUM//CEFTAZIDIME [Concomitant]
     Indication: FEBRILE BONE MARROW APLASIA
     Dosage: 1250 MG, TID
     Route: 042
     Dates: start: 20140102
  4. VANCOMYCIN [Concomitant]
     Active Substance: VANCOMYCIN
     Indication: FEBRILE BONE MARROW APLASIA
     Dosage: 1 G, UNK
     Route: 042
     Dates: start: 20140102
  5. ZOVIRAX [Concomitant]
     Active Substance: ACYCLOVIR
     Indication: PRODUCT USED FOR UNKNOWN INDICATION
     Dosage: 200 MG, TID
     Route: 048
  6. TRIFLUCAN [Concomitant]
     Active Substance: FLUCONAZOLE
     Indication: PRODUCT USED FOR UNKNOWN INDICATION
     Dosage: 130 MG, UNK
     Route: 048
  7. ATGAM [Concomitant]
     Active Substance: EQUINE THYMOCYTE IMMUNE GLOBULIN
     Indication: APLASTIC ANAEMIA
     Dosage: 40 MG/KG, QD
     Route: 065
     Dates: start: 20130530, end: 20130602
  8. ORACILLINE [Concomitant]
     Active Substance: PENICILLIN V
     Indication: PRODUCT USED FOR UNKNOWN INDICATION
     Dosage: 600000 IU, BID
     Route: 048
  9. EXJADE [Suspect]
     Active Substance: DEFERASIROX
     Indication: APLASTIC ANAEMIA
     Dosage: 500 MG, QD (DAILY)
     Route: 048
     Dates: start: 20140103, end: 20140105
  10. ALDACTONE [Concomitant]
     Active Substance: SPIRONOLACTONE
     Indication: PRODUCT USED FOR UNKNOWN INDICATION
     Route: 065
  11. AMLOR [Concomitant]
     Active Substance: AMLODIPINE BESYLATE
     Indication: PRODUCT USED FOR UNKNOWN INDICATION
     Dosage: 8 MG, UNK
     Route: 048

REACTIONS (9)
  - Blood urea increased [Recovered/Resolved]
  - Treatment failure [Unknown]
  - Staphylococcal sepsis [Unknown]
  - Blood creatinine increased [Recovered/Resolved]
  - Haemoglobin decreased [Unknown]
  - Acute kidney injury [Recovered/Resolved]
  - Blood albumin decreased [Unknown]
  - Oliguria [Recovered/Resolved]
  - Renal impairment [Recovered/Resolved]

NARRATIVE: CASE EVENT DATE: 20140105
